FAERS Safety Report 6826485-9 (Version None)
Quarter: 2010Q2

REPORT INFORMATION
  Report Type: 
  Country: None (occurrence: None)
  Receive Date: 20100628
  Receipt Date: 20100305
  Transmission Date: 20101027
  Serious: Yes (Death)
  Sender: FDA-Public Use
  Company Number: ADR-UNK-059

PATIENT
  Age: 58 Year
  Sex: Male

DRUGS (3)
  1. ZONISAMIDE [Suspect]
     Indication: DRUG USE FOR UNKNOWN INDICATION
     Dosage: ORAL
     Route: 048
  2. PREGABALIN [Concomitant]
  3. LAMOTRIGINE [Concomitant]

REACTIONS (1)
  - COMPLETED SUICIDE [None]
